FAERS Safety Report 5365557-5 (Version None)
Quarter: 2007Q2

REPORT INFORMATION
  Report Type: 
  Country: None (occurrence: None)
  Receive Date: 20070621
  Receipt Date: 20070613
  Transmission Date: 20071010
  Serious: Yes (Death)
  Sender: FDA-Public Use
  Company Number: B0476031A

PATIENT
  Age: 21 Year
  Sex: Male

DRUGS (1)
  1. FLOLAN [Suspect]
     Indication: PULMONARY HYPERTENSION
     Dosage: 6.5NGKM PER DAY
     Route: 065
     Dates: start: 20070601, end: 20070601

REACTIONS (2)
  - DEATH [None]
  - VENTRICULAR ARRHYTHMIA [None]
